FAERS Safety Report 8918161 (Version 3)
Quarter: 2013Q2

REPORT INFORMATION
  Report Type: Spontaneous
  Country: US (occurrence: US)
  Receive Date: 20121120
  Receipt Date: 20130422
  Transmission Date: 20140414
  Serious: No
  Sender: FDA-Public Use
  Company Number: US-009507513-1211USA004308

PATIENT
  Age: 27 Year
  Sex: Female

DRUGS (2)
  1. IMPLANON [Suspect]
     Indication: CONTRACEPTION
     Dosage: 1 DF, UNK
     Route: 059
     Dates: start: 20100701, end: 20121108
  2. IMPLANON [Suspect]
     Dosage: 1 UNK, UNK
     Route: 059
     Dates: start: 20121108

REACTIONS (2)
  - Device breakage [Unknown]
  - No adverse event [Unknown]
